FAERS Safety Report 8345689-X (Version None)
Quarter: 2012Q2

REPORT INFORMATION
  Report Type: 
  Country: None (occurrence: None)
  Receive Date: 20120508
  Receipt Date: 20070321
  Transmission Date: 20120825
  Serious: Yes (Death)
  Sender: FDA-Public Use
  Company Number: PHHY2007CA011586

PATIENT
  Sex: Female

DRUGS (1)
  1. ZOMETA [Suspect]
     Indication: BREAST CANCER
     Dosage: 3 MG, EVERY 4 WEEKS
     Route: 042
     Dates: start: 20050905, end: 20070205

REACTIONS (1)
  - DEATH [None]
